FAERS Safety Report 9518639 (Version 1)
Quarter: 2013Q3

REPORT INFORMATION
  Report Type: Report from Study
  Country: PK (occurrence: PK)
  Receive Date: 20130912
  Receipt Date: 20130912
  Transmission Date: 20140515
  Serious: Yes (Death)
  Sender: FDA-Public Use
  Company Number: PHHY2013PK100269

PATIENT
  Age: 65 Year
  Sex: Female

DRUGS (3)
  1. ACLASTA [Suspect]
     Indication: OSTEOPOROSIS
     Dosage: ONCE IN A YEAR
     Route: 042
  2. ACLASTA [Suspect]
     Dosage: ONCE IN A YEAR
     Route: 042
     Dates: start: 20110717
  3. CALCIUM [Concomitant]
     Indication: OSTEOPOROSIS
     Dosage: ONCE DAILY
     Route: 048
     Dates: start: 20110710, end: 20111020

REACTIONS (1)
  - Renal disorder [Fatal]
